FAERS Safety Report 7273187-3 (Version None)
Quarter: 2011Q1

REPORT INFORMATION
  Report Type: 
  Country: None (occurrence: None)
  Receive Date: 20110203
  Receipt Date: 20110126
  Transmission Date: 20110831
  Serious: Yes (Life-Threatening)
  Sender: FDA-Public Use
  Company Number: FR-MPIJNJ-2010-05162

PATIENT

DRUGS (9)
  1. TEMESTA                            /00273201/ [Concomitant]
     Dosage: UNK
  2. DURAGESIC-100 [Concomitant]
  3. DEROXAT [Concomitant]
     Dosage: UNK
  4. ZELITREX                           /01269701/ [Concomitant]
     Dosage: UNK
     Dates: start: 20080415
  5. DEXAMETHASONE [Concomitant]
     Indication: MULTIPLE MYELOMA
     Dosage: 40 MG, UNK
     Route: 048
     Dates: start: 20080415, end: 20080912
  6. VELCADE [Suspect]
     Indication: MULTIPLE MYELOMA
     Dosage: 1.3 MG/M2, UNK
     Route: 065
     Dates: start: 20080415, end: 20080516
  7. EPREX [Concomitant]
     Dosage: UNK
     Dates: end: 20100507
  8. LASIX [Concomitant]
     Dosage: UNK
  9. DAFALGAN                           /00020001/ [Concomitant]
     Dosage: UNK
     Dates: start: 20080506

REACTIONS (1)
  - THROMBOCYTOPENIA [None]
